FAERS Safety Report 5263361-X (Version None)
Quarter: 2007Q1

REPORT INFORMATION
  Report Type: 
  Country: None (occurrence: None)
  Receive Date: 20070313
  Receipt Date: 20070307
  Transmission Date: 20070707
  Serious: Yes (Death, Hospitalization, Other)
  Sender: FDA-Public Use
  Company Number: PHEH2007US01990

PATIENT
  Age: 90 Year
  Sex: Female
  Weight: 56.689 kg

DRUGS (8)
  1. EXJADE [Suspect]
     Indication: IRON OVERLOAD
     Dosage: 625 MG, QD
     Route: 048
     Dates: start: 20060309
  2. EXJADE [Suspect]
     Dosage: 375 MG, QD
     Route: 048
     Dates: end: 20070202
  3. LEVOXYL [Concomitant]
     Indication: HYPOTHYROIDISM
     Dosage: 125 UG, QD
     Route: 048
     Dates: end: 20070201
  4. ASPIRIN [Concomitant]
     Indication: ARTERIOSCLEROSIS
     Dosage: 81 MG, QD
     Route: 048
     Dates: end: 20070201
  5. TRIAMTERENE AND HYDROCHLOROTHIAZID ^HARRIS^ [Concomitant]
     Indication: OEDEMA PERIPHERAL
     Dosage: 1 TABLET, QD
     Dates: end: 20070201
  6. VITAMIN CAP [Concomitant]
     Dosage: 1 TABLET, QD
     Dates: end: 20070201
  7. ARANESP [Concomitant]
     Indication: ANAEMIA
     Dosage: 200MCG - 300MCG WEEKLY TO Q2WEEK
     Route: 058
     Dates: start: 20040408, end: 20070122
  8. VANCOMYCIN HYDROCHLORIDE [Concomitant]
     Dosage: 1 G, UNK
     Route: 042
     Dates: start: 20070205, end: 20070207

REACTIONS (29)
  - ALANINE AMINOTRANSFERASE INCREASED [None]
  - ANOREXIA [None]
  - ASPARTATE AMINOTRANSFERASE INCREASED [None]
  - BLOOD ALBUMIN DECREASED [None]
  - BLOOD ALKALINE PHOSPHATASE INCREASED [None]
  - BLOOD CREATININE INCREASED [None]
  - BLOOD UREA INCREASED [None]
  - COMA [None]
  - COMPUTERISED TOMOGRAM NORMAL [None]
  - CONTUSION [None]
  - DEPRESSED LEVEL OF CONSCIOUSNESS [None]
  - DYSPNOEA EXERTIONAL [None]
  - FALL [None]
  - FATIGUE [None]
  - HAEMOGLOBIN DECREASED [None]
  - HYPOTRICHOSIS [None]
  - MUSCULOSKELETAL PAIN [None]
  - OEDEMA PERIPHERAL [None]
  - OSTEOPENIA [None]
  - PLATELET COUNT DECREASED [None]
  - PNEUMONIA [None]
  - PROTEIN TOTAL DECREASED [None]
  - RASH [None]
  - TREMOR [None]
  - UNRESPONSIVE TO STIMULI [None]
  - UROSEPSIS [None]
  - WALKING AID USER [None]
  - WEIGHT DECREASED [None]
  - YELLOW SKIN [None]
